FAERS Safety Report 4579299-7 (Version None)
Quarter: 2005Q1

REPORT INFORMATION
  Report Type: 
  Country: None (occurrence: None)
  Receive Date: 20050209
  Receipt Date: 20050125
  Transmission Date: 20050727
  Serious: Yes (Hospitalization, Other)
  Sender: FDA-Public Use
  Company Number: USA041182739

PATIENT
  Age: 74 Year
  Sex: Male

DRUGS (3)
  1. PERMAX [Suspect]
     Indication: PARKINSON'S DISEASE
     Dosage: 1.5 MG/3 DAY
  2. SINEMET [Concomitant]
  3. SINEMET CR [Concomitant]

REACTIONS (23)
  - ASTHENIA [None]
  - BRADYKINESIA [None]
  - COGWHEEL RIGIDITY [None]
  - CONDITION AGGRAVATED [None]
  - CONFUSIONAL STATE [None]
  - CONSTIPATION [None]
  - DIFFICULTY IN WALKING [None]
  - DYSKINESIA [None]
  - DYSPHAGIA [None]
  - EYE DISORDER [None]
  - HALLUCINATION [None]
  - HYPERCHOLESTEROLAEMIA [None]
  - HYPERTENSION [None]
  - INSOMNIA [None]
  - LETHARGY [None]
  - LISTLESS [None]
  - NAUSEA [None]
  - PARAPHILIA [None]
  - PARKINSON'S DISEASE [None]
  - PHARMACEUTICAL PRODUCT COMPLAINT [None]
  - SPEECH DISORDER [None]
  - TREMOR [None]
  - VOMITING [None]
